FAERS Safety Report 21264375 (Version 1)
Quarter: 2022Q3

REPORT INFORMATION
  Report Type: Other
  Country: CA (occurrence: CA)
  Receive Date: 20220829
  Receipt Date: 20220829
  Transmission Date: 20221027
  Serious: Yes (Death, Other)
  Sender: FDA-Public Use
  Company Number: CA-APOTEX-2022AP011579

PATIENT
  Age: 91 Year
  Sex: Male

DRUGS (4)
  1. OLANZAPINE [Suspect]
     Active Substance: OLANZAPINE
     Indication: Wrong product administered
     Dosage: 2.5 MILLIGRAM
     Route: 065
  2. OXAZEPAM [Suspect]
     Active Substance: OXAZEPAM
     Indication: Wrong product administered
     Dosage: 5 MILLIGRAM
     Route: 065
  3. VENLAFAXINE [Suspect]
     Active Substance: VENLAFAXINE HYDROCHLORIDE
     Indication: Wrong product administered
     Dosage: 112.5 MILLIGRAM
     Route: 065
  4. MORPHINE [Suspect]
     Active Substance: MORPHINE
     Indication: Wrong product administered
     Dosage: 5 MILLIGRAM
     Route: 065

REACTIONS (10)
  - Accidental death [Fatal]
  - Depressed level of consciousness [Unknown]
  - Pneumonia aspiration [Unknown]
  - Aspiration [Unknown]
  - Oxygen saturation decreased [Unknown]
  - General physical health deterioration [Unknown]
  - Dyspnoea [Unknown]
  - Increased bronchial secretion [Unknown]
  - Wrong product administered [Unknown]
  - Somnolence [Unknown]
